FAERS Safety Report 7564240-5 (Version None)
Quarter: 2011Q2

REPORT INFORMATION
  Report Type: 
  Country: None (occurrence: None)
  Receive Date: 20110622
  Receipt Date: 20110608
  Transmission Date: 20111010
  Serious: Yes (Hospitalization)
  Sender: FDA-Public Use
  Company Number: PHHY2011FR29657

PATIENT
  Age: 70 Year
  Sex: Female

DRUGS (3)
  1. AMLODIPINE BESYLATE [Concomitant]
     Indication: MALIGNANT HYPERTENSION
  2. DIAMICRON [Concomitant]
     Indication: DIABETES MELLITUS
  3. RASILEZ HCT [Suspect]
     Indication: MALIGNANT HYPERTENSION
     Dosage: 300/12.5 MG, ONE TABLET DAILY
     Route: 065

REACTIONS (3)
  - MUSCULOSKELETAL PAIN [None]
  - GAIT DISTURBANCE [None]
  - MYALGIA [None]
